FAERS Safety Report 12597837 (Version 1)
Quarter: 2016Q3

REPORT INFORMATION
  Report Type: Spontaneous
  Country: US (occurrence: US)
  Receive Date: 20160727
  Receipt Date: 20160727
  Transmission Date: 20161109
  Serious: No
  Sender: FDA-Public Use
  Company Number: US-PFIZER INC-2016353961

PATIENT
  Age: 9 Decade
  Sex: Female

DRUGS (1)
  1. ADVIL [Suspect]
     Active Substance: IBUPROFEN
     Indication: ARTHRITIS
     Dosage: 200 MG, UNK
     Route: 048
     Dates: end: 20160718

REACTIONS (5)
  - Dysgeusia [Unknown]
  - Expired product administered [Unknown]
  - Product taste abnormal [Unknown]
  - Intentional product misuse [Unknown]
  - Oral discomfort [Recovering/Resolving]

NARRATIVE: CASE EVENT DATE: 20160718
